FAERS Safety Report 18240547 (Version 1)
Quarter: 2020Q3

REPORT INFORMATION
  Report Type: Spontaneous
  Country: GB (occurrence: GB)
  Receive Date: 20200908
  Receipt Date: 20200908
  Transmission Date: 20201103
  Serious: Yes (Hospitalization)
  Sender: FDA-Public Use
  Company Number: GB-TEVA-2020-GB-1823547

PATIENT
  Age: 45 Year
  Sex: Male

DRUGS (6)
  1. VERAPAMIL [Suspect]
     Active Substance: VERAPAMIL HYDROCHLORIDE
     Indication: CLUSTER HEADACHE
     Dosage: 80 MILLIGRAM DAILY; EVERY NIGHT.
     Route: 065
  2. GABAPENTIN. [Concomitant]
     Active Substance: GABAPENTIN
     Dosage: 600 MG
  3. MORPHGESIC [Concomitant]
     Active Substance: MORPHINE SULFATE
     Dosage: 20 MG
  4. MIRTAZAPINE. [Concomitant]
     Active Substance: MIRTAZAPINE
     Dosage: 30 MILLIGRAM DAILY; AT NIGHT.
  5. PROPANTHELINE BROMIDE. [Concomitant]
     Active Substance: PROPANTHELINE BROMIDE
     Dosage: 30 MILLIGRAM DAILY; EVERY NIGHT.
  6. SUMATRIPTAN. [Concomitant]
     Active Substance: SUMATRIPTAN
     Dosage: 20MG/0.1ML
     Route: 045

REACTIONS (4)
  - Overdose [Unknown]
  - Hypotension [Unknown]
  - Sinus node dysfunction [Recovered/Resolved]
  - Hypersensitivity [Unknown]
